FAERS Safety Report 4714133-3 (Version None)
Quarter: 2005Q3

REPORT INFORMATION
  Report Type: 
  Country: None (occurrence: None)
  Receive Date: 20050714
  Receipt Date: 20050714
  Transmission Date: 20060218
  Serious: No
  Sender: FDA-Public Use
  Company Number: None

PATIENT
  Age: 38 Year
  Sex: Female

DRUGS (4)
  1. AMOXICILLIN [Suspect]
     Dosage: 7 DAYS, 500 MG BID,
     Dates: start: 20041222, end: 20041229
  2. TRIAMTERINE /HCTZ [Concomitant]
  3. PHENAZOPYRADINE [Concomitant]
  4. SEPTRA [Concomitant]

REACTIONS (4)
  - HEPATIC TRAUMA [None]
  - JAUNDICE [None]
  - LIVER FUNCTION TEST ABNORMAL [None]
  - NAUSEA [None]
